FAERS Safety Report 12402910 (Version 2)
Quarter: 2016Q2

REPORT INFORMATION
  Report Type: Spontaneous
  Country: GB (occurrence: GB)
  Receive Date: 20160525
  Receipt Date: 20160526
  Transmission Date: 20160815
  Serious: Yes (Life-Threatening, Hospitalization, Disabling, Other)
  Sender: FDA-Public Use
  Company Number: GB-PFIZER INC-2016271954

PATIENT
  Age: 44 Year
  Sex: Male

DRUGS (2)
  1. PHENYTOIN. [Suspect]
     Active Substance: PHENYTOIN
     Indication: EPILEPSY
     Dosage: 350 MG, 1X/DAY (PREVIOUSLY 200MG BD)
     Route: 048
     Dates: start: 20150728, end: 20150911
  2. PHENYTOIN. [Suspect]
     Active Substance: PHENYTOIN
     Dosage: 200MG

REACTIONS (6)
  - Stevens-Johnson syndrome [Recovered/Resolved]
  - Macule [Unknown]
  - Systemic inflammatory response syndrome [Unknown]
  - Mucosal erosion [Unknown]
  - Rash erythematous [Unknown]
  - Oral mucosa erosion [Unknown]

NARRATIVE: CASE EVENT DATE: 20150819
